FAERS Safety Report 8997028 (Version 1)
Quarter: 2013Q1

REPORT INFORMATION
  Report Type: Spontaneous
  Country: US (occurrence: US)
  Receive Date: 20130104
  Receipt Date: 20130104
  Transmission Date: 20140127
  Serious: No
  Sender: FDA-Public Use
  Company Number: US-TARO-2012P1016522

PATIENT
  Age: 59 Year
  Sex: Female
  Weight: 108.86 kg

DRUGS (1)
  1. HYDROCORTISONE CREAM [Suspect]
     Indication: HAEMORRHOIDS
     Route: 054
     Dates: start: 20120324

REACTIONS (3)
  - Burning sensation [Recovered/Resolved]
  - Pruritus [Recovered/Resolved]
  - Incorrect route of drug administration [Recovered/Resolved]
